FAERS Safety Report 17297448 (Version 2)
Quarter: 2020Q1

REPORT INFORMATION
  Report Type: Spontaneous
  Country: US (occurrence: US)
  Receive Date: 20200121
  Receipt Date: 20200131
  Transmission Date: 20200409
  Serious: Yes (Other)
  Sender: FDA-Public Use
  Company Number: US-ASTRAZENECA-2020SE08865

PATIENT
  Sex: Male
  Weight: 86.2 kg

DRUGS (6)
  1. CILOSTAZOL. [Concomitant]
     Active Substance: CILOSTAZOL
     Route: 048
  2. ASPIRIN. [Concomitant]
     Active Substance: ASPIRIN
     Route: 048
  3. BYDUREON [Suspect]
     Active Substance: EXENATIDE
     Indication: TYPE 2 DIABETES MELLITUS
     Route: 058
     Dates: start: 20190701
  4. ROSUVASTATIN. [Suspect]
     Active Substance: ROSUVASTATIN
     Indication: BLOOD CHOLESTEROL
     Route: 048
  5. METFORMIN [Concomitant]
     Active Substance: METFORMIN HYDROCHLORIDE
     Indication: DIABETES MELLITUS
     Route: 048
  6. LOSARTAN. [Concomitant]
     Active Substance: LOSARTAN
     Indication: BLOOD PRESSURE MEASUREMENT
     Route: 048

REACTIONS (10)
  - Hyperkeratosis [Unknown]
  - Injection site mass [Recovering/Resolving]
  - Wound [Recovered/Resolved]
  - Injection site bruising [Unknown]
  - Blood glucose decreased [Unknown]
  - Wrong technique in device usage process [Recovered/Resolved]
  - Blood glucose increased [Recovered/Resolved]
  - Stress [Unknown]
  - Intentional product misuse [Unknown]
  - Wound infection [Recovered/Resolved]
